FAERS Safety Report 18216731 (Version 1)
Quarter: 2020Q3

REPORT INFORMATION
  Report Type: Spontaneous
  Country: FR (occurrence: FR)
  Receive Date: 20200901
  Receipt Date: 20200901
  Transmission Date: 20201103
  Serious: Yes (Death, Hospitalization)
  Sender: FDA-Public Use
  Company Number: FR-SUN PHARMACEUTICAL INDUSTRIES LTD-2020RR-259632

PATIENT
  Age: 75 Year
  Sex: Male

DRUGS (7)
  1. KARDEGIC [Interacting]
     Active Substance: ASPIRIN DL-LYSINE
     Indication: CARDIOVASCULAR EVENT PROPHYLAXIS
     Dosage: 1 DOSAGE FORM, DAILY
     Route: 048
     Dates: start: 201701, end: 20200721
  2. LERCAPRESS 20 MG/10 MG, COMPRIME PELLICULE [Concomitant]
     Active Substance: ENALAPRIL MALEATE\LERCANIDIPINE HYDROCHLORIDE
     Indication: HYPERTENSION
     Dosage: 1 DOSAGE FORM, DAILY
     Route: 048
  3. VENLAFAXINE [Suspect]
     Active Substance: VENLAFAXINE HYDROCHLORIDE
     Indication: NARCOLEPSY
     Dosage: 75 MILLIGRAM, DAILY
     Route: 048
  4. RIVOTRIL [Concomitant]
     Active Substance: CLONAZEPAM
     Indication: NARCOLEPSY
     Dosage: 12 GTT DROPS, DAILY
     Route: 048
  5. ATORVASTATINE [Concomitant]
     Active Substance: ATORVASTATIN
     Indication: PRODUCT USED FOR UNKNOWN INDICATION
     Dosage: 20 MILLIGRAM, WEEKLY
     Route: 048
  6. PEGASYS 90 MICROGRAMMES, SOLUTION INJECTABLE EN SERINGUE PREREMPLIE [Concomitant]
     Indication: MYELOFIBROSIS
     Dosage: 1 DOSAGE FORM, 1DOSE/2 WEEKS
     Route: 058
     Dates: start: 201701
  7. ARANESP 300 MICROGRAMMES, SOLUTION INJECTABLE EN STYLO PREREMPLI [Concomitant]
     Indication: MYELOFIBROSIS
     Dosage: 300 MICROGRAM, WEEKLY
     Route: 058

REACTIONS (2)
  - Cerebral haematoma [Fatal]
  - Subdural haematoma [Fatal]

NARRATIVE: CASE EVENT DATE: 20200721
